FAERS Safety Report 4370943-6 (Version None)
Quarter: 2004Q2

REPORT INFORMATION
  Report Type: 
  Country: None (occurrence: None)
  Receive Date: 20040601
  Receipt Date: 20040519
  Transmission Date: 20050107
  Serious: Yes (Hospitalization)
  Sender: FDA-Public Use
  Company Number: PERI00204001456

PATIENT
  Age: 60 Year
  Sex: Female
  Weight: 70 kg

DRUGS (7)
  1. COVERSYL (PERINDOPRIL) [Suspect]
     Indication: HYPERTENSION
     Dosage: 2 MG QD PO
     Route: 048
     Dates: start: 20040401, end: 20040424
  2. LITHIUM CARBONATE [Suspect]
     Indication: BIPOLAR DISORDER
     Dosage: 400 MG BID PO
     Route: 048
     Dates: start: 20010101, end: 20040424
  3. PROCYCLIDINE HYDROCHLORIDE 2MG TAB [Concomitant]
  4. CHLORPROMAZINE [Concomitant]
  5. VENLAFAXINE HCL [Concomitant]
  6. CARBAMAZEPINE [Concomitant]
  7. NITRAZEPAM [Concomitant]

REACTIONS (2)
  - CONFUSIONAL STATE [None]
  - DRUG TOXICITY [None]
